FAERS Safety Report 13825998 (Version 1)
Quarter: 2017Q3

REPORT INFORMATION
  Report Type: Spontaneous
  Country: US (occurrence: US)
  Receive Date: 20170802
  Receipt Date: 20170802
  Transmission Date: 20171127
  Serious: Yes (Other)
  Sender: FDA-Public Use
  Company Number: US-ALLERGAN-1732225US

PATIENT
  Age: 20 Year
  Sex: Female

DRUGS (2)
  1. VRAYLAR [Suspect]
     Active Substance: CARIPRAZINE
     Indication: BIPOLAR DISORDER
     Dosage: 1.5 MG, UNK
     Route: 065
  2. LITHIUM. [Concomitant]
     Active Substance: LITHIUM

REACTIONS (5)
  - Feeling jittery [Unknown]
  - Confusional state [Unknown]
  - Impaired driving ability [Unknown]
  - Inappropriate schedule of drug administration [Unknown]
  - Disturbance in attention [Unknown]
